FAERS Safety Report 4400913-0 (Version None)
Quarter: 2004Q3

REPORT INFORMATION
  Report Type: 
  Country: None (occurrence: None)
  Receive Date: 20040907
  Receipt Date: 20030806
  Transmission Date: 20050211
  Serious: No
  Sender: FDA-Public Use
  Company Number: US-BRISTOL-MYERS SQUIBB COMPANY-12348595

PATIENT
  Age: 70 Year
  Sex: Male
  Weight: 91 kg

DRUGS (5)
  1. COUMADIN [Suspect]
     Indication: THROMBOSIS
     Dosage: INCREASED FROM 2.5 MG TO 3MG DAILY ON 30-JUL-03
     Route: 048
  2. CARBIDOPA AND LEVODOPA [Concomitant]
  3. SELEGILINE HCL [Concomitant]
  4. SYNTHROID [Concomitant]
  5. FLUDROCORTISONE ACETATE [Concomitant]

REACTIONS (2)
  - DIZZINESS [None]
  - INTERNATIONAL NORMALISED RATIO DECREASED [None]
